FAERS Safety Report 5372445-7 (Version None)
Quarter: 2007Q2

REPORT INFORMATION
  Report Type: 
  Country: None (occurrence: None)
  Receive Date: 20070625
  Receipt Date: 20070614
  Transmission Date: 20071010
  Serious: Yes (Disabling)
  Sender: FDA-Public Use
  Company Number: 1-15024903

PATIENT
  Age: 29 Year
  Sex: Female

DRUGS (1)
  1. QUININE (STRENGTH, MFR UNKNOWN) [Suspect]
     Indication: SUICIDE ATTEMPT
     Dosage: 6 G, ORAL
     Route: 048

REACTIONS (12)
  - BLINDNESS TRANSIENT [None]
  - CATARACT [None]
  - CHROMATOPSIA [None]
  - IRIS ATROPHY [None]
  - IRIS HYPOPIGMENTATION [None]
  - MIOSIS [None]
  - NIGHT BLINDNESS [None]
  - OPTIC ATROPHY [None]
  - RETINAL VASCULAR DISORDER [None]
  - RETINOGRAM ABNORMAL [None]
  - VISUAL ACUITY REDUCED [None]
  - VISUAL FIELD DEFECT [None]
